FAERS Safety Report 6687301-1 (Version None)
Quarter: 2010Q2

REPORT INFORMATION
  Report Type: 
  Country: None (occurrence: None)
  Receive Date: 20100419
  Receipt Date: 20100408
  Transmission Date: 20101027
  Serious: Yes (Hospitalization)
  Sender: FDA-Public Use
  Company Number: JP-AMGEN-US406697

PATIENT
  Sex: Female
  Weight: 49 kg

DRUGS (1)
  1. ENBREL [Suspect]
     Indication: RHEUMATOID ARTHRITIS
     Route: 058
     Dates: start: 20050801, end: 20100211

REACTIONS (1)
  - SYSTEMIC LUPUS ERYTHEMATOSUS [None]
